FAERS Safety Report 15326464 (Version 1)
Quarter: 2018Q3

REPORT INFORMATION
  Report Type: Other
  Country: ES (occurrence: ES)
  Receive Date: 20180828
  Receipt Date: 20180828
  Transmission Date: 20181010
  Serious: Yes (Hospitalization, Other)
  Sender: FDA-Public Use
  Company Number: ES-COVIS PHARMA B.V.-2018COV03741

PATIENT
  Sex: Female
  Weight: 64 kg

DRUGS (8)
  1. OMEPRAZOLE MAGNESIUM. [Suspect]
     Active Substance: OMEPRAZOLE MAGNESIUM
     Route: 048
  2. OBINUTUZUMAB. [Suspect]
     Active Substance: OBINUTUZUMAB
     Indication: B-CELL LYMPHOMA
     Dosage: 1000 MG
     Route: 042
     Dates: start: 20180306, end: 20180307
  3. VALSARTAN. [Concomitant]
     Active Substance: VALSARTAN
  4. BENDAMUSTINE HYDROCHLORIDE. [Suspect]
     Active Substance: BENDAMUSTINE HYDROCHLORIDE
     Indication: B-CELL LYMPHOMA
     Dosage: 149.3999939 MG
     Route: 042
     Dates: start: 20180306, end: 20180313
  5. ESCITALOPRAM [Suspect]
     Active Substance: ESCITALOPRAM OXALATE
     Dosage: UNK
  6. ATORVASTATIN [Concomitant]
     Active Substance: ATORVASTATIN
  7. INCB050465 [Suspect]
     Active Substance: PARSACLISIB HYDROCHLORIDE
     Indication: B-CELL LYMPHOMA
     Dosage: 20 MG
     Route: 048
     Dates: start: 20180306, end: 20180319
  8. COTRIMOXAZOLE [Suspect]
     Active Substance: SULFAMETHOXAZOLE\TRIMETHOPRIM

REACTIONS (11)
  - Hypertensive cardiomyopathy [Unknown]
  - Hypomagnesaemia [Unknown]
  - Dizziness [Unknown]
  - Vomiting [Unknown]
  - Asthenia [Unknown]
  - Hypokalaemia [Unknown]
  - Syncope [Unknown]
  - Pyrexia [Unknown]
  - Ventricular tachycardia [Unknown]
  - Erythema [Unknown]
  - Electrocardiogram QT prolonged [Recovered/Resolved]

NARRATIVE: CASE EVENT DATE: 201803
